FAERS Safety Report 18778551 (Version 2)
Quarter: 2021Q1

REPORT INFORMATION
  Report Type: Report from Study
  Country: AR (occurrence: AR)
  Receive Date: 20210123
  Receipt Date: 20210130
  Transmission Date: 20210419
  Serious: Yes (Death, Hospitalization)
  Sender: FDA-Public Use
  Company Number: NVSC2021AR015586

PATIENT
  Sex: Female

DRUGS (2)
  1. KISQALI [Suspect]
     Active Substance: RIBOCICLIB
     Indication: METASTASES TO BONE MARROW
  2. KISQALI [Suspect]
     Active Substance: RIBOCICLIB
     Indication: BREAST CANCER
     Dosage: 600 MG, QD (ONCE DAILY)
     Route: 048
     Dates: start: 20200603

REACTIONS (5)
  - Immunosuppression [Fatal]
  - Cardio-respiratory arrest [Fatal]
  - Malignant neoplasm progression [Fatal]
  - Pneumonia [Fatal]
  - Breast cancer [Fatal]
